FAERS Safety Report 7823774-6 (Version None)
Quarter: 2011Q4

REPORT INFORMATION
  Report Type: 
  Country: None (occurrence: None)
  Receive Date: 20111019
  Receipt Date: 20111013
  Transmission Date: 20120403
  Serious: No
  Sender: FDA-Public Use
  Company Number: US-PFIZER INC-2011214574

PATIENT
  Sex: Female

DRUGS (1)
  1. PREMPRO [Suspect]
     Dosage: 0.45/1.5 MG, 1X/DAY
     Route: 048
     Dates: start: 20110401

REACTIONS (2)
  - HOT FLUSH [None]
  - DRUG INEFFECTIVE [None]
